FAERS Safety Report 9442332 (Version 1)
Quarter: 2013Q3

REPORT INFORMATION
  Report Type: Spontaneous
  Country: US (occurrence: None)
  Receive Date: 20130805
  Receipt Date: 20130805
  Transmission Date: 20140515
  Serious: No
  Sender: FDA-Public Use
  Company Number: None

PATIENT
  Age: 67 None
  Sex: Female
  Weight: 10.89 kg

DRUGS (6)
  1. NEUPRO [Suspect]
     Indication: PARKINSON^S DISEASE
     Dosage: 1 EVERY 24 HOURS SKIN
     Route: 061
     Dates: start: 20130722
  2. CO-Q10 [Concomitant]
  3. VIT-E [Concomitant]
  4. FISH OIL [Concomitant]
  5. MAGNESIUM [Concomitant]
  6. VITAMIN D [Concomitant]

REACTIONS (1)
  - Product quality issue [None]
